FAERS Safety Report 9859166 (Version 2)
Quarter: 2014Q2

REPORT INFORMATION
  Report Type: Spontaneous
  Country: IT (occurrence: None)
  Receive Date: 20140129
  Receipt Date: 20140421
  Transmission Date: 20141212
  Serious: Yes (Hospitalization)
  Sender: FDA-Public Use
  Company Number: AUR-APL-2014-00534

PATIENT
  Age: 55 Year
  Sex: Male

DRUGS (2)
  1. SERTRALINE [Suspect]
     Indication: DEPRESSION
     Dosage: 250 MG, TOTAL, ORAL
     Route: 048
     Dates: start: 20140110, end: 20140110
  2. RIVOTRIL [Suspect]
     Indication: DEPRESSION
     Dosage: 10 DOSAGE FORMS, TOTAL, ORAL
     Route: 048
     Dates: start: 20140110, end: 20140110

REACTIONS (5)
  - Intentional self-injury [None]
  - Intentional overdose [None]
  - Bradykinesia [None]
  - Bradyphrenia [None]
  - Drug abuse [None]
